FAERS Safety Report 9768201 (Version 2)
Quarter: 2013Q4

REPORT INFORMATION
  Report Type: Spontaneous
  Country: AT (occurrence: AT)
  Receive Date: 20131217
  Receipt Date: 20131217
  Transmission Date: 20140711
  Serious: Yes (Other)
  Sender: FDA-Public Use
  Company Number: AT-GLAXOSMITHKLINE-D0082049A

PATIENT
  Age: 54 Year
  Sex: Female

DRUGS (3)
  1. LAMICTAL [Suspect]
     Dosage: 25MG PER DAY
     Route: 048
     Dates: start: 20130603
  2. CYMBALTA [Suspect]
     Dosage: 60MG PER DAY
     Route: 048
     Dates: start: 2010
  3. VALDOXAN [Suspect]
     Dosage: 50MG PER DAY
     Route: 048
     Dates: start: 20110207, end: 20130815

REACTIONS (9)
  - Tunnel vision [Unknown]
  - Disturbance in attention [Unknown]
  - Amnestic disorder [Unknown]
  - Dizziness [Unknown]
  - Headache [Unknown]
  - Visual field defect [Unknown]
  - Slow response to stimuli [Unknown]
  - Impaired driving ability [Unknown]
  - Foot fracture [Unknown]
